FAERS Safety Report 7220408-9 (Version None)
Quarter: 2011Q1

REPORT INFORMATION
  Report Type: 
  Country: None (occurrence: None)
  Receive Date: 20110111
  Receipt Date: 20110106
  Transmission Date: 20110831
  Serious: Yes (Disabling)
  Sender: FDA-Public Use
  Company Number: FR-CEPHALON-2010006086

PATIENT
  Sex: Male

DRUGS (2)
  1. RITUXIMAB [Suspect]
  2. PRE-RANDOMIZATION (BENDAMUSTINE) [Suspect]

REACTIONS (1)
  - HEPATIC FAILURE [None]
